FAERS Safety Report 7976958-0 (Version None)
Quarter: 2011Q4

REPORT INFORMATION
  Report Type: 
  Country: None (occurrence: None)
  Receive Date: 20111213
  Receipt Date: 20111110
  Transmission Date: 20120403
  Serious: No
  Sender: FDA-Public Use
  Company Number: US-AMGEN-USASP2011059472

PATIENT
  Age: 51 Year
  Sex: Female

DRUGS (9)
  1. LEUCOVORIN CALCIUM [Concomitant]
  2. METHOTREXATE [Concomitant]
  3. ENBREL [Suspect]
     Dosage: 50 MG, QWK
     Dates: start: 20110901, end: 20111001
  4. GABAPENTIN [Concomitant]
  5. ENBREL [Suspect]
     Dosage: 50 MG, QWK
     Dates: start: 20110824, end: 20110901
  6. PREDNISONE TAB [Concomitant]
  7. FOLIC ACID [Concomitant]
  8. LISINOPRIL AND HYDROCHLOROTHIAZIDE [Concomitant]
  9. ENBREL [Suspect]
     Indication: RHEUMATOID ARTHRITIS
     Dosage: 50 MG, QWK
     Dates: start: 20111001

REACTIONS (7)
  - HEADACHE [None]
  - FATIGUE [None]
  - MOBILITY DECREASED [None]
  - INJECTION SITE PAIN [None]
  - DIZZINESS [None]
  - ABNORMAL DREAMS [None]
  - INSOMNIA [None]
